FAERS Safety Report 20047478 (Version 2)
Quarter: 2021Q4

REPORT INFORMATION
  Report Type: Spontaneous
  Country: EG (occurrence: EG)
  Receive Date: 20211109
  Receipt Date: 20211117
  Transmission Date: 20220303
  Serious: Yes (Other)
  Sender: FDA-Public Use
  Company Number: EG-NOVARTISPH-NVSC2021EG249347

PATIENT
  Age: 59 Year
  Sex: Female

DRUGS (1)
  1. AFINITOR [Suspect]
     Active Substance: EVEROLIMUS
     Indication: Breast cancer metastatic
     Dosage: 5 MG, QD
     Route: 048
     Dates: start: 201909, end: 202004

REACTIONS (11)
  - Epistaxis [Recovered/Resolved]
  - Abdominal pain upper [Recovered/Resolved]
  - Headache [Recovered/Resolved]
  - Onychalgia [Recovered/Resolved]
  - Nail disorder [Recovered/Resolved]
  - Stomatitis [Recovered/Resolved]
  - Dermatitis [Recovered/Resolved]
  - Drug ineffective [Recovered/Resolved]
  - Breast cancer metastatic [Unknown]
  - Malignant neoplasm progression [Unknown]
  - Pruritus [Recovered/Resolved]

NARRATIVE: CASE EVENT DATE: 20190901
